FAERS Safety Report 7728820-6 (Version None)
Quarter: 2011Q3

REPORT INFORMATION
  Report Type: 
  Country: None (occurrence: None)
  Receive Date: 20110906
  Receipt Date: 20110830
  Transmission Date: 20111222
  Serious: Yes (Other)
  Sender: FDA-Public Use
  Company Number: AR-AMGEN-ARGSP2011042313

PATIENT
  Age: 47 Year
  Sex: Female
  Weight: 57 kg

DRUGS (2)
  1. LOTRIAL                            /00935901/ [Concomitant]
     Dosage: UNK
  2. ENBREL [Suspect]
     Indication: RHEUMATOID ARTHRITIS
     Dosage: 25 MG, WEEKLY
     Route: 058
     Dates: start: 20050202, end: 20110704

REACTIONS (1)
  - FOOT DEFORMITY [None]
